FAERS Safety Report 9045166 (Version 1)
Quarter: 2013Q1

REPORT INFORMATION
  Report Type: Spontaneous
  Country: US (occurrence: US)
  Receive Date: 20130130
  Receipt Date: 20130130
  Transmission Date: 20140127
  Serious: No
  Sender: FDA-Public Use
  Company Number: US-009507513-1301USA010738

PATIENT
  Age: 6 Year
  Sex: Male

DRUGS (1)
  1. COPPERTONE WET N CLEAR KIDS SPF 45PLUS [Suspect]
     Indication: PRODUCT USED FOR UNKNOWN INDICATION
     Dosage: UNK, UNKNOWN
     Route: 061
     Dates: start: 20120629

REACTIONS (2)
  - Sunburn [Unknown]
  - Dry skin [Not Recovered/Not Resolved]
